FAERS Safety Report 13910944 (Version 2)
Quarter: 2019Q3

REPORT INFORMATION
  Report Type: Spontaneous
  Country: DE (occurrence: DE)
  Receive Date: 20170828
  Receipt Date: 20190903
  Transmission Date: 20191004
  Serious: Yes (Congenital Anomaly, Other)
  Sender: FDA-Public Use
  Company Number: DE-DRREDDYS-GER/GER/17/0092673

PATIENT
  Age: 9 Month
  Sex: Female
  Weight: 2.32 kg

DRUGS (4)
  1. LEVETIRACETAM. [Suspect]
     Active Substance: LEVETIRACETAM
     Indication: PRODUCT USED FOR UNKNOWN INDICATION
     Dosage: 1000 MG IN THE MORNING AND 1000 MG IN THE EVENING DAILY
     Route: 064
     Dates: start: 201601, end: 20160210
  2. BELLA HEXAL [Concomitant]
     Active Substance: CYPROTERONE ACETATE\ETHINYL ESTRADIOL
     Indication: PRODUCT USED FOR UNKNOWN INDICATION
     Dosage: 0.035 MG/2 MG?DAILY DOSE: 2 MG MILLIGRAM(S) EVERY DAY
     Route: 064
     Dates: start: 201601, end: 20160204
  3. OSPOLOT [Suspect]
     Active Substance: SULTHIAME
     Indication: PRODUCT USED FOR UNKNOWN INDICATION
     Dosage: DAILY DOSE: 300 MG MILLIGRAM(S) EVERY DAY
     Route: 064
     Dates: start: 201601, end: 20161003
  4. LEVETIRACETAM. [Suspect]
     Active Substance: LEVETIRACETAM
     Route: 064
     Dates: start: 20150211, end: 20161003

REACTIONS (3)
  - Foetal exposure during pregnancy [Unknown]
  - Congenital cyst [Not Recovered/Not Resolved]
  - Small for dates baby [Unknown]

NARRATIVE: CASE EVENT DATE: 2016
